FAERS Safety Report 4293404-1 (Version None)
Quarter: 2004Q1

REPORT INFORMATION
  Report Type: 
  Country: None (occurrence: None)
  Receive Date: 20040212
  Receipt Date: 20030619
  Transmission Date: 20041129
  Serious: No
  Sender: FDA-Public Use
  Company Number: US-GLAXOSMITHKLINE-A0413247A

PATIENT
  Age: 28 Year
  Sex: Female

DRUGS (1)
  1. PAXIL [Suspect]
     Route: 048

REACTIONS (4)
  - DIZZINESS [None]
  - EYE PAIN [None]
  - FEELING ABNORMAL [None]
  - NAUSEA [None]
